FAERS Safety Report 7536390-0 (Version None)
Quarter: 2011Q2

REPORT INFORMATION
  Report Type: 
  Country: None (occurrence: None)
  Receive Date: 20110608
  Receipt Date: 20110608
  Transmission Date: 20111010
  Serious: No
  Sender: FDA-Public Use
  Company Number: None

PATIENT
  Age: 88 Year
  Sex: Female

DRUGS (1)
  1. CRESTOR [Suspect]

REACTIONS (5)
  - RHABDOMYOLYSIS [None]
  - JOINT SWELLING [None]
  - MYALGIA [None]
  - JOINT WARMTH [None]
  - GAIT DISTURBANCE [None]
